FAERS Safety Report 23964021 (Version 1)
Quarter: 2024Q2

REPORT INFORMATION
  Report Type: Report from Study
  Country: BR (occurrence: BR)
  Receive Date: 20240611
  Receipt Date: 20240611
  Transmission Date: 20240716
  Serious: Yes (Other)
  Sender: FDA-Public Use
  Company Number: BR-JNJFOC-20240614421

PATIENT
  Age: 57 Year
  Sex: Female
  Weight: 94 kg

DRUGS (1)
  1. SIMPONI [Suspect]
     Active Substance: GOLIMUMAB
     Indication: Rheumatoid arthritis
     Route: 058

REACTIONS (3)
  - Pulmonary congestion [Unknown]
  - Dengue fever [Unknown]
  - Influenza [Unknown]

NARRATIVE: CASE EVENT DATE: 20240401
